FAERS Safety Report 5288938-7 (Version None)
Quarter: 2007Q2

REPORT INFORMATION
  Report Type: 
  Country: None (occurrence: None)
  Receive Date: 20070405
  Receipt Date: 20070330
  Transmission Date: 20071010
  Serious: Yes (Other)
  Sender: FDA-Public Use
  Company Number: US-PFIZER INC-2006145083

PATIENT
  Sex: Male
  Weight: 63.5 kg

DRUGS (3)
  1. VIAGRA [Suspect]
     Indication: ERECTILE DYSFUNCTION
     Route: 048
  2. TOPROL-XL [Concomitant]
  3. GLUCOSAMINE WITH MSM [Concomitant]

REACTIONS (2)
  - CATARACT OPERATION [None]
  - CYANOPSIA [None]
